FAERS Safety Report 14947851 (Version 2)
Quarter: 2018Q2

REPORT INFORMATION
  Report Type: Report from Study
  Country: US (occurrence: US)
  Receive Date: 20180529
  Receipt Date: 20180611
  Transmission Date: 20180711
  Serious: Yes (Other)
  Sender: FDA-Public Use
  Company Number: US-BAYER-2018-097191

PATIENT
  Age: 66 Year
  Sex: Female

DRUGS (4)
  1. STIVARGA [Suspect]
     Active Substance: REGORAFENIB
     Dosage: 120 MG, DAILY
     Route: 048
     Dates: start: 20180406, end: 201804
  2. STIVARGA [Suspect]
     Active Substance: REGORAFENIB
     Dosage: 80 MG, DAILY
     Dates: start: 20180415, end: 20180519
  3. STIVARGA [Suspect]
     Active Substance: REGORAFENIB
     Dosage: UNK
     Route: 048
  4. STIVARGA [Suspect]
     Active Substance: REGORAFENIB
     Dosage: 80 MG, DAILY
     Route: 048
     Dates: end: 20180405

REACTIONS (8)
  - Rash vesicular [None]
  - Rash [None]
  - Rash papular [None]
  - Gait inability [None]
  - Dysstasia [None]
  - Erythema [None]
  - Joint range of motion decreased [None]
  - Rash [Recovered/Resolved]

NARRATIVE: CASE EVENT DATE: 20180406
